FAERS Safety Report 24079413 (Version 6)
Quarter: 2025Q1

REPORT INFORMATION
  Report Type: Spontaneous
  Country: JP (occurrence: JP)
  Receive Date: 20240711
  Receipt Date: 20250320
  Transmission Date: 20250409
  Serious: No
  Sender: PFIZER
  Company Number: JP-PFIZER INC-PV202400088298

PATIENT
  Age: 12 Year
  Sex: Male
  Weight: 32 kg

DRUGS (3)
  1. NGENLA [Suspect]
     Active Substance: SOMATROGON-GHLA
     Indication: Growth hormone deficiency
     Dosage: 22 MG, WEEKLY
     Route: 058
     Dates: start: 20220707, end: 20220714
  2. NGENLA [Suspect]
     Active Substance: SOMATROGON-GHLA
     Indication: Dwarfism
  3. NORDITROPIN [Concomitant]
     Active Substance: SOMATROPIN
     Dosage: 1.1 MG, DAILY
     Route: 058

REACTIONS (1)
  - Injection site pain [Recovered/Resolved]

NARRATIVE: CASE EVENT DATE: 20220714
